FAERS Safety Report 12167656 (Version 1)
Quarter: 2016Q1

REPORT INFORMATION
  Report Type: Spontaneous
  Country: US (occurrence: None)
  Receive Date: 20160309
  Receipt Date: 20160309
  Transmission Date: 20160526
  Serious: Yes (Other)
  Sender: FDA-Public Use
  Company Number: None

PATIENT
  Age: 32 Year
  Sex: Female
  Weight: 107.5 kg

DRUGS (5)
  1. QSYMIA [Suspect]
     Active Substance: PHENTERMINE HYDROCHLORIDE\TOPIRAMATE
     Indication: WEIGHT CONTROL
     Dosage: 1 PILL IN AM ONCE DAILY TAKEN BY MOUTH
     Route: 048
     Dates: start: 20160227, end: 20160229
  2. ZYRTEC [Concomitant]
     Active Substance: CETIRIZINE HYDROCHLORIDE
  3. SINGULAIR [Concomitant]
     Active Substance: MONTELUKAST SODIUM
  4. ZANTAC [Concomitant]
     Active Substance: RANITIDINE HYDROCHLORIDE
  5. SLEEP MACHINE [Concomitant]

REACTIONS (4)
  - Urticaria [None]
  - Scab [None]
  - No therapeutic response [None]
  - Pruritus [None]

NARRATIVE: CASE EVENT DATE: 20160229
